FAERS Safety Report 18207401 (Version 1)
Quarter: 2020Q3

REPORT INFORMATION
  Report Type: Spontaneous
  Country: US (occurrence: US)
  Receive Date: 20200827
  Receipt Date: 20200827
  Transmission Date: 20201103
  Serious: Yes (Hospitalization)
  Sender: FDA-Public Use
  Company Number: None

PATIENT
  Sex: Male

DRUGS (12)
  1. AMLODIPINE [Concomitant]
     Active Substance: AMLODIPINE BESYLATE
  2. CIPROFLOXACN [Concomitant]
     Active Substance: CIPROFLOXACIN
  3. CARVEDILOL. [Concomitant]
     Active Substance: CARVEDILOL
  4. EZETIMBE [Concomitant]
     Active Substance: EZETIMIBE
  5. METOPROL SUC [Concomitant]
  6. KETOCONAZOLE. [Concomitant]
     Active Substance: KETOCONAZOLE
  7. CEPHAXLEXIN [Concomitant]
  8. ESBRIET [Suspect]
     Active Substance: PIRFENIDONE
     Indication: IDIOPATHIC PULMONARY FIBROSIS
     Route: 048
     Dates: start: 20190702
  9. BENZONATATE. [Concomitant]
     Active Substance: BENZONATATE
  10. METHYLPRED [Concomitant]
     Active Substance: METHYLPREDNISOLONE
  11. LATANOPROST. [Concomitant]
     Active Substance: LATANOPROST
  12. CLOPIDOGREL [Concomitant]
     Active Substance: CLOPIDOGREL BISULFATE

REACTIONS (2)
  - Aneurysm [None]
  - Surgery [None]
